FAERS Safety Report 7483148-7 (Version None)
Quarter: 2011Q2

REPORT INFORMATION
  Report Type: 
  Country: None (occurrence: None)
  Receive Date: 20110516
  Receipt Date: 20100401
  Transmission Date: 20111010
  Serious: Yes (Other)
  Sender: FDA-Public Use
  Company Number: DE-GENENTECH-318419

PATIENT
  Age: 87 Year
  Sex: Female

DRUGS (1)
  1. LUCENTIS [Suspect]
     Indication: AGE-RELATED MACULAR DEGENERATION
     Route: 031

REACTIONS (4)
  - CONTUSION [None]
  - FALL [None]
  - MUSCULOSKELETAL DISCOMFORT [None]
  - PAIN [None]
